FAERS Safety Report 12656010 (Version 1)
Quarter: 2016Q3

REPORT INFORMATION
  Report Type: Spontaneous
  Country: US (occurrence: US)
  Receive Date: 20160816
  Receipt Date: 20160816
  Transmission Date: 20161109
  Serious: No
  Sender: FDA-Public Use
  Company Number: US-ROCHE-1761918

PATIENT
  Sex: Female

DRUGS (10)
  1. LABETALOL [Concomitant]
     Active Substance: LABETALOL\LABETALOL HYDROCHLORIDE
     Route: 065
  2. PEGASYS [Suspect]
     Active Substance: PEGINTERFERON ALFA-2A
     Indication: THROMBOLYSIS
     Route: 058
     Dates: start: 20160311, end: 201604
  3. PROGESTERONE. [Concomitant]
     Active Substance: PROGESTERONE
     Route: 065
  4. LOVENOX [Concomitant]
     Active Substance: ENOXAPARIN SODIUM
  5. ATORVASTATIN [Concomitant]
     Active Substance: ATORVASTATIN
     Route: 065
  6. METRONIDAZOL [Concomitant]
     Active Substance: METRONIDAZOLE
     Route: 065
  7. ENOXAPARIN [Concomitant]
     Active Substance: ENOXAPARIN
     Dosage: 40/0.4 ML
     Route: 065
  8. CEPHALEXIN. [Concomitant]
     Active Substance: CEPHALEXIN
     Route: 065
  9. PHENTERMINE. [Concomitant]
     Active Substance: PHENTERMINE
     Route: 065
  10. IBUPROFEN. [Concomitant]
     Active Substance: IBUPROFEN
     Route: 065

REACTIONS (2)
  - Pregnancy [Unknown]
  - No adverse event [Unknown]
